FAERS Safety Report 8294816-1 (Version None)
Quarter: 2012Q2

REPORT INFORMATION
  Report Type: 
  Country: None (occurrence: None)
  Receive Date: 20120418
  Receipt Date: 20120411
  Transmission Date: 20120825
  Serious: Yes (Other)
  Sender: FDA-Public Use
  Company Number: US-AMGEN-USASP2012022995

PATIENT
  Sex: Male

DRUGS (1)
  1. ENBREL [Suspect]
     Indication: RHEUMATOID ARTHRITIS
     Dosage: 50 MG, QWK
     Dates: start: 20011001

REACTIONS (8)
  - PULMONARY FIBROSIS [None]
  - BRONCHITIS [None]
  - EMPHYSEMA [None]
  - COCCIDIOIDOMYCOSIS [None]
  - RHEUMATOID ARTHRITIS [None]
  - ASTHMA [None]
  - CHRONIC OBSTRUCTIVE PULMONARY DISEASE [None]
  - HYPERSENSITIVITY [None]
